FAERS Safety Report 6441086-2 (Version None)
Quarter: 2009Q4

REPORT INFORMATION
  Report Type: 
  Country: None (occurrence: None)
  Receive Date: 20091116
  Receipt Date: 20091105
  Transmission Date: 20100525
  Serious: Yes (Other)
  Sender: FDA-Public Use
  Company Number: GB-ROCHE-667665

PATIENT
  Age: 7 Year
  Sex: Male

DRUGS (4)
  1. TAMIFLU [Suspect]
     Route: 065
     Dates: start: 20091105
  2. PARACETAMOL [Concomitant]
  3. IBUPROFEN [Concomitant]
  4. FLU VIRAL VACCINE [Concomitant]

REACTIONS (2)
  - CONFUSIONAL STATE [None]
  - HALLUCINATION [None]
